FAERS Safety Report 17326651 (Version 2)
Quarter: 2020Q3

REPORT INFORMATION
  Report Type: Spontaneous
  Country: JP (occurrence: JP)
  Receive Date: 20200127
  Receipt Date: 20200729
  Transmission Date: 20201102
  Serious: Yes (Death, Hospitalization)
  Sender: FDA-Public Use
  Company Number: JP-BAYER-2020-011150

PATIENT
  Age: 69 Year
  Sex: Female

DRUGS (1)
  1. NEXAVAR [Suspect]
     Active Substance: SORAFENIB
     Indication: RENAL CANCER
     Dosage: DAILY DOSE 200 MG
     Route: 048
     Dates: start: 20191126, end: 20200106

REACTIONS (9)
  - Jaundice [Fatal]
  - Condition aggravated [Fatal]
  - Product use in unapproved indication [None]
  - Palmar-plantar erythrodysaesthesia syndrome [Recovered/Resolved]
  - Depressed level of consciousness [Fatal]
  - Off label use [None]
  - Hepatitis fulminant [Fatal]
  - Liver function test abnormal [Fatal]
  - Hepatorenal syndrome [Fatal]

NARRATIVE: CASE EVENT DATE: 20191126
